FAERS Safety Report 21940778 (Version 1)
Quarter: 2023Q1

REPORT INFORMATION
  Report Type: Spontaneous
  Country: ES (occurrence: ES)
  Receive Date: 20230201
  Receipt Date: 20230201
  Transmission Date: 20230417
  Serious: No
  Sender: FDA-Public Use
  Company Number: ES-EXELIXIS-CABO-22052494

PATIENT
  Age: 56 Year
  Sex: Female

DRUGS (2)
  1. CABOMETYX [Suspect]
     Active Substance: CABOZANTINIB S-MALATE
     Indication: Chromophobe renal cell carcinoma
     Dosage: 60 MG, QD
     Dates: start: 202004
  2. CABOMETYX [Suspect]
     Active Substance: CABOZANTINIB S-MALATE
     Indication: Metastases to peritoneum
     Dosage: 40 MG, QD
     Dates: end: 202012

REACTIONS (3)
  - Hypertransaminasaemia [Unknown]
  - Metastases to peritoneum [Unknown]
  - Pneumonitis [Unknown]

NARRATIVE: CASE EVENT DATE: 20201201
